FAERS Safety Report 4420060-1 (Version None)
Quarter: 2004Q3

REPORT INFORMATION
  Report Type: 
  Country: None (occurrence: None)
  Receive Date: 20040805
  Receipt Date: 20040805
  Transmission Date: 20050211
  Serious: No
  Sender: FDA-Public Use
  Company Number: None

PATIENT
  Sex: Male
  Weight: 70.2 kg

DRUGS (7)
  1. GLIADEL [Suspect]
     Indication: GLIOBLASTOMA MULTIFORME
     Dosage: 7.7 MG PER WAFER - MAX OF 8
     Dates: start: 20040621
  2. OL-BENZYLGUANINE (O6BG) [Suspect]
     Indication: GLIOBLASTOMA MULTIFORME
     Dosage: 120 MG/M2 INFUSION X 5 DAYS
     Dates: start: 20040621, end: 20040626
  3. DECADRON [Concomitant]
  4. DILANTIN [Concomitant]
  5. LABETALOL HCL [Concomitant]
  6. PERCOCET [Concomitant]
  7. AMBIEN [Concomitant]

REACTIONS (6)
  - CEREBROSPINAL FLUID LEAKAGE [None]
  - GASTROOESOPHAGEAL REFLUX DISEASE [None]
  - HEADACHE [None]
  - PORENCEPHALY [None]
  - POST PROCEDURAL COMPLICATION [None]
  - WOUND COMPLICATION [None]
